FAERS Safety Report 8606062-X (Version None)
Quarter: 2012Q3

REPORT INFORMATION
  Report Type: 
  Country: None (occurrence: None)
  Receive Date: 20120820
  Receipt Date: 20120813
  Transmission Date: 20120928
  Serious: Yes (Hospitalization)
  Sender: FDA-Public Use
  Company Number: FR-ROCHE-1101019

PATIENT
  Sex: Female

DRUGS (5)
  1. ANTALGIC [Concomitant]
     Indication: MASTOIDITIS
     Dates: start: 20120619
  2. PREVISCAN [Concomitant]
     Indication: MASTOIDITIS
     Dates: start: 20120619
  3. ROCEPHIN [Suspect]
     Indication: MASTOIDITIS
     Route: 030
     Dates: start: 20120619
  4. FLAGYL [Suspect]
     Indication: MASTOIDITIS
     Route: 048
     Dates: start: 20120619, end: 20120726
  5. OFLOXACIN [Suspect]
     Indication: MASTOIDITIS
     Dosage: AURICULAR DROPS 1.5MG/0.5ML
     Route: 048
     Dates: start: 20120619

REACTIONS (2)
  - PARAESTHESIA [None]
  - DYSAESTHESIA [None]
